FAERS Safety Report 13283799 (Version 1)
Quarter: 2017Q1

REPORT INFORMATION
  Report Type: Spontaneous
  Country: US (occurrence: US)
  Receive Date: 20170301
  Receipt Date: 20170301
  Transmission Date: 20170428
  Serious: No
  Sender: FDA-Public Use
  Company Number: US-HORIZON-ACT-0038-2017

PATIENT
  Age: 15 Year
  Sex: Male

DRUGS (3)
  1. SPORANOX [Concomitant]
     Active Substance: ITRACONAZOLE
     Dosage: BID
  2. ACTIMMUNE [Suspect]
     Active Substance: INTERFERON GAMMA-1B
     Indication: CHRONIC GRANULOMATOUS DISEASE
     Dosage: 75 ?G TIW
     Dates: start: 20150415
  3. BACTRIM [Concomitant]
     Active Substance: SULFAMETHOXAZOLE\TRIMETHOPRIM
     Dosage: ONCE A DAY

REACTIONS (3)
  - Viral infection [Recovered/Resolved]
  - Diarrhoea [Recovered/Resolved]
  - Vomiting [Recovered/Resolved]
